FAERS Safety Report 7506728-9 (Version None)
Quarter: 2011Q2

REPORT INFORMATION
  Report Type: 
  Country: None (occurrence: None)
  Receive Date: 20110526
  Receipt Date: 20110523
  Transmission Date: 20111010
  Serious: Yes (Hospitalization, Other)
  Sender: FDA-Public Use
  Company Number: US-PFIZER INC-2011110208

PATIENT
  Age: 75 Year
  Sex: Female

DRUGS (8)
  1. CLONAZEPAM [Concomitant]
     Dosage: 1 MG, 3X/DAY
  2. DONEPEZIL [Concomitant]
     Dosage: 10 MG, DAILY
  3. HYDROCHLOROTHIAZIDE [Concomitant]
     Dosage: 25 MG, DAILY
  4. PHENYTOIN [Suspect]
     Dosage: 250 MG, DAILY
  5. RISPERDAL [Suspect]
     Indication: SCHIZOPHRENIA
     Dosage: 37.5 MG, EVERY 2 WEEKS
     Route: 030
  6. ESCITALOPRAM [Concomitant]
     Dosage: 10 MG DAILY
  7. HALOPERIDOL [Concomitant]
     Dosage: 7.5 MG DAILY
  8. PHENOBARBITAL [Concomitant]
     Dosage: 60 MG, DAILY

REACTIONS (6)
  - TOXICITY TO VARIOUS AGENTS [None]
  - GRAND MAL CONVULSION [None]
  - MENTAL STATUS CHANGES [None]
  - BRADYCARDIA [None]
  - NEUTROPENIA [None]
  - HYPOTHERMIA [None]
